FAERS Safety Report 9650720 (Version 2)
Quarter: 2013Q4

REPORT INFORMATION
  Report Type: Spontaneous
  Country: US (occurrence: US)
  Receive Date: 20131029
  Receipt Date: 20131029
  Transmission Date: 20140711
  Serious: Yes (Hospitalization)
  Sender: FDA-Public Use
  Company Number: US-BRISTOL-MYERS SQUIBB COMPANY-19249549

PATIENT
  Age: 59 Year
  Sex: Male

DRUGS (6)
  1. SPRYCEL [Suspect]
     Indication: CHRONIC MYELOID LEUKAEMIA
     Dosage: STRENGTH:100 MG
     Route: 048
     Dates: start: 201306
  2. SIMVASTATIN [Concomitant]
  3. NORCO [Concomitant]
  4. ASPIRIN [Concomitant]
  5. TOPROL [Concomitant]
  6. EFIENT [Concomitant]

REACTIONS (3)
  - Limb injury [Unknown]
  - Oedema peripheral [Unknown]
  - Cellulitis [Recovering/Resolving]
